FAERS Safety Report 6218005-7 (Version None)
Quarter: 2009Q2

REPORT INFORMATION
  Report Type: 
  Country: None (occurrence: None)
  Receive Date: 20090608
  Receipt Date: 20090529
  Transmission Date: 20091009
  Serious: Yes (Hospitalization, Other)
  Sender: FDA-Public Use
  Company Number: US-BAYER-200922269NA

PATIENT
  Age: 53 Year
  Sex: Female

DRUGS (1)
  1. MAGNEVIST [Suspect]
     Indication: NUCLEAR MAGNETIC RESONANCE IMAGING ABDOMINAL
     Dosage: TOTAL DAILY DOSE: 10 ML  UNIT DOSE: 10 ML
     Route: 042

REACTIONS (2)
  - BURNING SENSATION [None]
  - DEPRESSED LEVEL OF CONSCIOUSNESS [None]
